FAERS Safety Report 25729690 (Version 1)
Quarter: 2025Q3

REPORT INFORMATION
  Report Type: Other
  Country: CN (occurrence: CN)
  Receive Date: 20250827
  Receipt Date: 20250827
  Transmission Date: 20251021
  Serious: Yes (Other)
  Sender: Phathom Pharmaceuticals
  Company Number: CN-PHATHOM PHARMACEUTICALS INC.-2025PHT02310

PATIENT
  Age: 36 Year
  Sex: Male
  Weight: 65 kg

DRUGS (8)
  1. VONOPRAZAN [Suspect]
     Active Substance: VONOPRAZAN
     Indication: Large intestine polyp
     Dosage: 20 MG, 2X/DAY
     Route: 048
     Dates: start: 20250804, end: 20250804
  2. VONOPRAZAN [Suspect]
     Active Substance: VONOPRAZAN
     Indication: Chronic gastritis
  3. VONOPRAZAN [Suspect]
     Active Substance: VONOPRAZAN
     Indication: Helicobacter infection
  4. CLARITHROMYCIN [Suspect]
     Active Substance: CLARITHROMYCIN
     Indication: Anti-infective therapy
     Dosage: 20 MG, 2X/DAY
     Route: 048
     Dates: start: 20250804, end: 20250804
  5. TINIDAZOLE [Suspect]
     Active Substance: TINIDAZOLE
     Indication: Anti-infective therapy
     Dosage: UNK, 2X/DAY
     Route: 048
     Dates: start: 20250804, end: 20250804
  6. BISMUTH SUBCITRATE [Suspect]
     Active Substance: BISMUTH SUBCITRATE
     Indication: Large intestine polyp
     Dosage: UNK, 2X/DAY
     Route: 048
     Dates: start: 20250804, end: 20250804
  7. BISMUTH SUBCITRATE [Suspect]
     Active Substance: BISMUTH SUBCITRATE
     Indication: Chronic gastritis
  8. BISMUTH SUBCITRATE [Suspect]
     Active Substance: BISMUTH SUBCITRATE
     Indication: Helicobacter infection

REACTIONS (4)
  - Pruritus [Recovering/Resolving]
  - Pyrexia [Recovering/Resolving]
  - Erythema [Recovering/Resolving]
  - Temperature intolerance [Recovering/Resolving]

NARRATIVE: CASE EVENT DATE: 20250804
